FAERS Safety Report 8320210-0 (Version None)
Quarter: 2012Q2

REPORT INFORMATION
  Report Type: 
  Country: None (occurrence: None)
  Receive Date: 20120430
  Receipt Date: 20100809
  Transmission Date: 20120825
  Serious: Yes (Hospitalization)
  Sender: FDA-Public Use
  Company Number: US-BIOGENIDEC-2010BI025503

PATIENT
  Age: 57 Year
  Sex: Female

DRUGS (17)
  1. POTASSIUM CHLORIDE [Concomitant]
     Route: 048
  2. DEPAKOTE [Concomitant]
     Route: 048
  3. LASIX [Concomitant]
     Indication: LYMPHOEDEMA
  4. PRILOSEC [Concomitant]
     Route: 048
  5. LIDODERM [Concomitant]
  6. ALLOPURINOL [Concomitant]
     Indication: GOUT
  7. TYSABRI [Suspect]
     Indication: MULTIPLE SCLEROSIS
     Route: 042
     Dates: start: 20070629
  8. DILAUDID [Concomitant]
  9. VICODIN [Concomitant]
  10. LAMICTAL [Concomitant]
     Route: 048
  11. ZOFRAN [Concomitant]
     Indication: NAUSEA
  12. ALDACTONE [Concomitant]
     Route: 048
  13. SYNTHROID [Concomitant]
     Route: 048
  14. LYRICA [Concomitant]
     Route: 048
  15. INSULIN [Concomitant]
  16. PROZAC [Concomitant]
     Route: 048
  17. PROVIGIL [Concomitant]

REACTIONS (13)
  - IRON DEFICIENCY ANAEMIA [None]
  - POOR VENOUS ACCESS [None]
  - FATIGUE [None]
  - VOMITING [None]
  - HYPOALBUMINAEMIA [None]
  - HYPERTONIC BLADDER [None]
  - HEADACHE [None]
  - PYELONEPHRITIS [None]
  - DECREASED APPETITE [None]
  - MULTIPLE SCLEROSIS RELAPSE [None]
  - DIARRHOEA [None]
  - HYPOPHOSPHATAEMIA [None]
  - BLADDER SPASM [None]
